FAERS Safety Report 14423658 (Version 3)
Quarter: 2018Q2

REPORT INFORMATION
  Report Type: Report from Study
  Country: GB (occurrence: GB)
  Receive Date: 20180123
  Receipt Date: 20180509
  Transmission Date: 20180711
  Serious: Yes (Hospitalization)
  Sender: FDA-Public Use
  Company Number: GB-ROCHE-2005979

PATIENT
  Age: 37 Year
  Sex: Female
  Weight: 96 kg

DRUGS (14)
  1. TRAMADOL. [Concomitant]
     Active Substance: TRAMADOL
     Indication: PROCEDURAL PAIN
     Route: 048
     Dates: start: 20171005, end: 20171010
  2. COBIMETINIB. [Suspect]
     Active Substance: COBIMETINIB
     Indication: COLORECTAL ADENOCARCINOMA
     Dosage: DATE OF MOST RECENT DOSE PRIOR TO PRIOR TO THE EVENT ELEVATED CPK LEVELS: 01/MAR/2017 (60MG)?ON DAYS
     Route: 048
     Dates: start: 20161114
  3. PARACETAMOL [Concomitant]
     Active Substance: ACETAMINOPHEN
     Indication: PROCEDURAL PAIN
     Route: 048
     Dates: start: 201702, end: 20170307
  4. CETIRIZINE [Concomitant]
     Active Substance: CETIRIZINE HYDROCHLORIDE
     Indication: SEASONAL ALLERGY
     Route: 048
     Dates: start: 201706
  5. ELLESTE DUET [Concomitant]
     Indication: MENOPAUSAL SYMPTOMS
     Route: 048
     Dates: start: 20170818, end: 20170905
  6. ELLESTE DUET [Concomitant]
     Route: 048
     Dates: start: 20170925, end: 20180118
  7. ELLESTE DUET [Concomitant]
     Route: 048
     Dates: start: 201102, end: 20170718
  8. PARACETAMOL [Concomitant]
     Active Substance: ACETAMINOPHEN
     Indication: COLITIS
     Route: 048
     Dates: start: 201705
  9. LOPERAMIDE [Concomitant]
     Active Substance: LOPERAMIDE
     Indication: DIARRHOEA
     Route: 048
     Dates: start: 201702, end: 201708
  10. ELLESTE DUET [Concomitant]
     Route: 048
     Dates: start: 201803
  11. ATEZOLIZUMAB. [Suspect]
     Active Substance: ATEZOLIZUMAB
     Indication: COLORECTAL ADENOCARCINOMA
     Dosage: MOST RECENT DOSE PRIOR TO TWISTED LOOP OF SMALL BOWEL ON 03/OCT/2017 AT 16:23?DATE OF THE MOST RECEN
     Route: 042
     Dates: start: 20161114
  12. PARACETAMOL [Concomitant]
     Active Substance: ACETAMINOPHEN
     Indication: ARTHRALGIA
  13. PARACETAMOL [Concomitant]
     Active Substance: ACETAMINOPHEN
     Indication: DIARRHOEA
     Route: 048
     Dates: start: 20171005
  14. CANDESARTAN. [Concomitant]
     Active Substance: CANDESARTAN
     Indication: LEFT VENTRICULAR DYSFUNCTION
     Route: 048
     Dates: start: 201608

REACTIONS (2)
  - Blood creatine phosphokinase increased [Recovered/Resolved]
  - Volvulus of small bowel [Recovered/Resolved]

NARRATIVE: CASE EVENT DATE: 20170307
